FAERS Safety Report 26176998 (Version 1)
Quarter: 2025Q4

REPORT INFORMATION
  Report Type: Report from Study
  Country: US (occurrence: US)
  Receive Date: 20251218
  Receipt Date: 20251218
  Transmission Date: 20260118
  Serious: Yes (Other)
  Sender: NOVARTIS
  Company Number: US-002147023-NVSC2025US176665

PATIENT
  Sex: Female

DRUGS (1)
  1. KESIMPTA [Suspect]
     Active Substance: OFATUMUMAB
     Indication: Multiple sclerosis
     Dosage: 20 MG, OTHER, (ONCE A WEEK FOR 3 WEEKS, SKIP A WEEK, THEN START MONTHLY)
     Route: 058
     Dates: start: 20251003

REACTIONS (2)
  - Diverticulitis [Recovering/Resolving]
  - Lower respiratory tract infection [Unknown]
